FAERS Safety Report 16910388 (Version 1)
Quarter: 2019Q4

REPORT INFORMATION
  Report Type: Spontaneous
  Country: US (occurrence: US)
  Receive Date: 20191011
  Receipt Date: 20191011
  Transmission Date: 20200122
  Serious: No
  Sender: FDA-Public Use
  Company Number: US-009507513-1910USA002380

PATIENT
  Age: 21 Year
  Sex: Female
  Weight: 68.03 kg

DRUGS (2)
  1. NEXPLANON [Suspect]
     Active Substance: ETONOGESTREL
     Indication: CONTRACEPTION
     Dosage: ONE, EVERY THREE YEARS
     Route: 059
     Dates: start: 201606
  2. NEXPLANON [Suspect]
     Active Substance: ETONOGESTREL
     Indication: WEIGHT INCREASED

REACTIONS (8)
  - Drug ineffective for unapproved indication [Recovered/Resolved]
  - Hyperphagia [Not Recovered/Not Resolved]
  - Gastrointestinal bacterial overgrowth [Not Recovered/Not Resolved]
  - Weight decreased [Recovered/Resolved]
  - Incorrect product administration duration [Unknown]
  - Abdominal pain [Not Recovered/Not Resolved]
  - Back pain [Not Recovered/Not Resolved]
  - Hormone level abnormal [Not Recovered/Not Resolved]

NARRATIVE: CASE EVENT DATE: 20190809
